FAERS Safety Report 14324284 (Version 3)
Quarter: 2020Q3

REPORT INFORMATION
  Report Type: Report from Study
  Country: US (occurrence: US)
  Receive Date: 20171226
  Receipt Date: 20180103
  Transmission Date: 20201105
  Serious: Yes (Hospitalization)
  Sender: FDA-Public Use
  Company Number: US-JNJFOC-20171100931

PATIENT
  Age: 66 Year
  Sex: Male
  Weight: 92.4 kg

DRUGS (30)
  1. DEFINITY [Concomitant]
     Active Substance: PERFLUTREN
     Route: 042
     Dates: start: 20171027, end: 20171028
  2. ELIQUIS [Concomitant]
     Active Substance: APIXABAN
     Indication: ANTICOAGULANT THERAPY
     Route: 048
     Dates: start: 20171030, end: 20171030
  3. ELIQUIS [Concomitant]
     Active Substance: APIXABAN
     Route: 048
     Dates: start: 20171030, end: 20171129
  4. DEMEROL [Concomitant]
     Active Substance: MEPERIDINE HYDROCHLORIDE
     Route: 042
     Dates: start: 20171030, end: 20171030
  5. ALLEGRA [Concomitant]
     Active Substance: FEXOFENADINE HYDROCHLORIDE
     Dosage: EVERY ARM
     Route: 048
     Dates: start: 20170602, end: 20171019
  6. AMIODARONE [Concomitant]
     Active Substance: AMIODARONE
     Route: 048
     Dates: start: 20150108, end: 20171026
  7. IBRUTINIB [Suspect]
     Active Substance: IBRUTINIB
     Indication: CHRONIC LYMPHOCYTIC LEUKAEMIA
     Route: 048
     Dates: start: 20130530, end: 20171205
  8. ZITHROMAX [Concomitant]
     Active Substance: AZITHROMYCIN DIHYDRATE
     Route: 048
     Dates: start: 20171027, end: 20171030
  9. HEPARIN [Concomitant]
     Active Substance: HEPARIN SODIUM
     Route: 058
     Dates: start: 20171028, end: 20171030
  10. LOPRESSOR [Concomitant]
     Active Substance: METOPROLOL TARTRATE
     Route: 048
     Dates: start: 20171027
  11. TYLENOL [Concomitant]
     Active Substance: ACETAMINOPHEN
     Route: 065
     Dates: start: 20171027, end: 20171030
  12. ALUMINIUM HYDROXIDE GEL W/SIMETHICONE [Concomitant]
     Route: 065
  13. TAPAZOLE [Concomitant]
     Active Substance: METHIMAZOLE
     Route: 048
     Dates: start: 20171030, end: 20171204
  14. VERSED [Concomitant]
     Active Substance: MIDAZOLAM HYDROCHLORIDE
     Route: 065
     Dates: start: 20171030, end: 20171030
  15. LEXISCAN [Concomitant]
     Active Substance: REGADENOSON
     Route: 042
     Dates: start: 20171029, end: 20171029
  16. MONTELUKAST SODIUM. [Concomitant]
     Active Substance: MONTELUKAST SODIUM
     Dosage: AT BED TIME
     Route: 048
     Dates: start: 20170602, end: 20171019
  17. BENDAMUSTINE [Suspect]
     Active Substance: BENDAMUSTINE
     Indication: CHRONIC LYMPHOCYTIC LEUKAEMIA
     Dosage: C1 DAYS 2?3, C2?6, DAYS 1?2, EVERY 28 DAYS
     Route: 042
     Dates: start: 20130530, end: 20130920
  18. LOPRESSOR [Concomitant]
     Active Substance: METOPROLOL TARTRATE
     Route: 048
     Dates: start: 20171030
  19. PACERONE [Concomitant]
     Active Substance: AMIODARONE HYDROCHLORIDE
     Route: 048
     Dates: start: 20171027, end: 20171027
  20. SUBLIMAZE [Concomitant]
     Active Substance: FENTANYL CITRATE
     Route: 065
     Dates: start: 20171030, end: 20171030
  21. AMBIEN [Concomitant]
     Active Substance: ZOLPIDEM TARTRATE
     Dosage: AT BEDTIME AS NECESSARY
     Route: 048
     Dates: start: 20171019
  22. AZITHROMYCIN ANHYDROUS. [Concomitant]
     Active Substance: AZITHROMYCIN ANHYDROUS
     Route: 048
     Dates: start: 20171103, end: 20171107
  23. IBRUTINIB [Suspect]
     Active Substance: IBRUTINIB
     Route: 048
  24. RITUXIMAB. [Suspect]
     Active Substance: RITUXIMAB
     Indication: CHRONIC LYMPHOCYTIC LEUKAEMIA
     Dosage: EVERY 28 DAYS
     Route: 042
     Dates: start: 20130529, end: 20130919
  25. ROCEPHIN [Concomitant]
     Active Substance: CEFTRIAXONE SODIUM
     Route: 042
  26. MAGNESIUM HYDROXIDE W/SIMETHICONE [Concomitant]
     Route: 065
  27. LIDOCAINE. [Concomitant]
     Active Substance: LIDOCAINE
     Route: 065
     Dates: start: 20171030, end: 20171030
  28. SODIUM CHLORIDE. [Concomitant]
     Active Substance: SODIUM CHLORIDE
     Route: 042
     Dates: start: 20171030, end: 20171030
  29. ZOFRAN [Concomitant]
     Active Substance: ONDANSETRON HYDROCHLORIDE
     Route: 065
     Dates: start: 20171030, end: 20171030
  30. BAYER ASPIRIN [Concomitant]
     Active Substance: ASPIRIN
     Route: 048
     Dates: start: 20150205, end: 20171026

REACTIONS (4)
  - Pericardial effusion [Recovered/Resolved]
  - Atrial fibrillation [Recovered/Resolved]
  - Pneumonia [Recovered/Resolved]
  - Pleural effusion [Recovered/Resolved]

NARRATIVE: CASE EVENT DATE: 20171026
